FAERS Safety Report 6970874-9 (Version None)
Quarter: 2010Q3

REPORT INFORMATION
  Report Type: 
  Country: None (occurrence: None)
  Receive Date: 20100908
  Receipt Date: 20100830
  Transmission Date: 20110219
  Serious: Yes (Other)
  Sender: FDA-Public Use
  Company Number: B0672861A

PATIENT
  Age: 34 Year
  Sex: Male

DRUGS (9)
  1. PAXIL [Suspect]
     Indication: PRODUCT USED FOR UNKNOWN INDICATION
     Route: 048
  2. PAXIL [Suspect]
     Route: 048
     Dates: start: 20100601
  3. PAXIL [Suspect]
     Route: 048
  4. ABILIFY [Concomitant]
     Route: 048
  5. HORIZON [Concomitant]
     Route: 065
  6. LEXOTAN [Concomitant]
     Route: 048
  7. BIPERIDEN HYDROCHLORIDE TAB [Concomitant]
     Route: 048
  8. ROHYPNOL [Concomitant]
     Route: 065
  9. U PAN [Concomitant]
     Route: 048

REACTIONS (2)
  - AGGRESSION [None]
  - DRUG WITHDRAWAL SYNDROME [None]
